FAERS Safety Report 15328601 (Version 2)
Quarter: 2018Q3

REPORT INFORMATION
  Report Type: Spontaneous
  Country: DE (occurrence: DE)
  Receive Date: 20180829
  Receipt Date: 20180921
  Transmission Date: 20181010
  Serious: No
  Sender: FDA-Public Use
  Company Number: DE-IGSA-SR10005338

PATIENT
  Age: 50 Year
  Sex: Male

DRUGS (2)
  1. TRANEXAMIC ACID. [Concomitant]
     Active Substance: TRANEXAMIC ACID
     Dosage: 2 G, UNK
  2. ALBUTEIN [Suspect]
     Active Substance: ALBUMIN HUMAN
     Indication: MULTIPLE INJURIES
     Dosage: 100 G, SINGLE
     Route: 042
     Dates: start: 20170924, end: 20170924

REACTIONS (1)
  - Blood pressure decreased [Recovered/Resolved]

NARRATIVE: CASE EVENT DATE: 20170924
